FAERS Safety Report 7047141-0 (Version None)
Quarter: 2010Q4

REPORT INFORMATION
  Report Type: 
  Country: None (occurrence: None)
  Receive Date: 20101007
  Receipt Date: 20100922
  Transmission Date: 20110411
  Serious: Yes (Other)
  Sender: FDA-Public Use
  Company Number: LTI2010A00214

PATIENT
  Age: 53 Year
  Sex: Female

DRUGS (7)
  1. ACTOPLUS MET [Suspect]
     Indication: TYPE 2 DIABETES MELLITUS
     Dosage: ORAL
     Route: 048
     Dates: start: 20100616, end: 20100618
  2. REPAGLINIDE [Concomitant]
  3. ALLOPURINOL [Concomitant]
  4. QUINAPRIL HCL [Concomitant]
  5. LASIX [Concomitant]
  6. SPIRONOLACTONE [Concomitant]
  7. ENDOTELON (VITIS VINIFERA, HERBAL EXTRACT NOS) [Concomitant]

REACTIONS (3)
  - ANGIOEDEMA [None]
  - LARYNGEAL DYSPNOEA [None]
  - URTICARIA [None]
